FAERS Safety Report 5413145-4 (Version None)
Quarter: 2007Q3

REPORT INFORMATION
  Report Type: 
  Country: None (occurrence: None)
  Receive Date: 20070810
  Receipt Date: 20070730
  Transmission Date: 20080115
  Serious: Yes (Hospitalization)
  Sender: FDA-Public Use
  Company Number: 016570

PATIENT
  Age: 58 Year
  Sex: Female
  Weight: 89.8 kg

DRUGS (5)
  1. PROPRANOLOL [Suspect]
     Indication: HYPERTENSION
     Dosage: 60 MG, QD,  ORAL
     Route: 048
     Dates: start: 20070501
  2. LISINOPRIL [Concomitant]
  3. SYNTHROID [Concomitant]
  4. ARIMIDEX [Concomitant]
  5. BONIVA [Concomitant]

REACTIONS (4)
  - DIZZINESS [None]
  - HEART RATE DECREASED [None]
  - MUSCLE STRAIN [None]
  - NON-CARDIAC CHEST PAIN [None]
